FAERS Safety Report 23874421 (Version 1)
Quarter: 2024Q2

REPORT INFORMATION
  Report Type: Spontaneous
  Country: US (occurrence: US)
  Receive Date: 20240520
  Receipt Date: 20240520
  Transmission Date: 20240716
  Serious: No
  Sender: FDA-Public Use
  Company Number: US-PFIZER INC-PV202400065003

PATIENT
  Age: 37 Year
  Sex: Female

DRUGS (1)
  1. ZAVZPRET [Suspect]
     Active Substance: ZAVEGEPANT HYDROCHLORIDE
     Indication: Migraine
     Dosage: 10 MG, AS NEEDED (10 MG BY NASAL ROUTE AS NEEDED (AT ONSET OF MIGRAINE. DO NOT REPEAT DOSE) ONLY SPR
     Route: 045
     Dates: start: 202310

REACTIONS (5)
  - Skin irritation [Recovered/Resolved]
  - Lacrimation increased [Recovered/Resolved]
  - Nasal discomfort [Recovered/Resolved]
  - Throat irritation [Recovered/Resolved]
  - Dysphonia [Recovered/Resolved]
